FAERS Safety Report 5699845-X (Version None)
Quarter: 2008Q2

REPORT INFORMATION
  Report Type: 
  Country: None (occurrence: None)
  Receive Date: 20080410
  Receipt Date: 20080312
  Transmission Date: 20081010
  Serious: No
  Sender: FDA-Public Use
  Company Number: US-BOEHRINGER INGELHEIM GMBH, GERMANY-2008-BP-03884BP

PATIENT
  Sex: Female

DRUGS (1)
  1. MICARDIS HCT [Suspect]

REACTIONS (4)
  - DYSPNOEA [None]
  - HEADACHE [None]
  - HEART RATE INCREASED [None]
  - WITHDRAWAL SYNDROME [None]
